APPROVED DRUG PRODUCT: KOMZIFTI
Active Ingredient: ZIFTOMENIB
Strength: 200MG
Dosage Form/Route: CAPSULE;ORAL
Application: N220305 | Product #001
Applicant: KURA ONCOLOGY INC
Approved: Nov 13, 2025 | RLD: Yes | RS: Yes | Type: RX

PATENTS:
Patent 12410184 | Expires: Jul 16, 2044
Patent 12410184 | Expires: Jul 16, 2044
Patent 11944627 | Expires: Sep 6, 2038
Patent 11944627 | Expires: Sep 6, 2038
Patent 11673898 | Expires: Mar 15, 2037
Patent 11673898 | Expires: Mar 15, 2037
Patent 10869868 | Expires: Jan 26, 2037
Patent 10869868 | Expires: Jan 26, 2037
Patent 10174041 | Expires: Mar 16, 2036
Patent 10174041 | Expires: Mar 16, 2036
Patent 10781218 | Expires: Mar 15, 2037
Patent 12521396 | Expires: Jul 16, 2044
Patent 10077271 | Expires: Mar 16, 2036

EXCLUSIVITY:
Code: NCE | Date: Nov 13, 2030